FAERS Safety Report 14227611 (Version 1)
Quarter: 2017Q4

REPORT INFORMATION
  Report Type: Spontaneous
  Country: US (occurrence: US)
  Receive Date: 20171127
  Receipt Date: 20171127
  Transmission Date: 20180321
  Serious: No
  Sender: FDA-Public Use
  Company Number: US-BAUSCH-BL-2017-013561

PATIENT
  Sex: Male

DRUGS (1)
  1. PREDNICARBATE. [Suspect]
     Active Substance: PREDNICARBATE
     Indication: CUTANEOUS LUPUS ERYTHEMATOSUS
     Route: 065

REACTIONS (2)
  - Product quality issue [Unknown]
  - Drug ineffective [Unknown]
